FAERS Safety Report 6169845-4 (Version None)
Quarter: 2009Q2

REPORT INFORMATION
  Report Type: 
  Country: None (occurrence: None)
  Receive Date: 20090428
  Receipt Date: 20090417
  Transmission Date: 20091009
  Serious: Yes (Hospitalization)
  Sender: FDA-Public Use
  Company Number: FR-BAYER-200918824GPV

PATIENT
  Age: 20 Year
  Sex: Male

DRUGS (7)
  1. CIPROFLOXACIN HCL [Suspect]
     Indication: DRUG USE FOR UNKNOWN INDICATION
     Route: 041
     Dates: start: 20090125, end: 20090210
  2. ASPARAGINASE [Suspect]
     Indication: B-CELL TYPE ACUTE LEUKAEMIA
     Dosage: UNIT DOSE: 1700 IU
     Route: 041
     Dates: start: 20090126, end: 20090126
  3. VINCRISTINE [Suspect]
     Indication: B-CELL TYPE ACUTE LEUKAEMIA
     Route: 041
     Dates: start: 20090124, end: 20090227
  4. METHOTREXATE [Suspect]
     Indication: B-CELL TYPE ACUTE LEUKAEMIA
     Route: 037
     Dates: start: 20090123, end: 20090130
  5. MITOXANTRONE [Suspect]
     Indication: B-CELL TYPE ACUTE LEUKAEMIA
     Route: 041
     Dates: start: 20090124, end: 20090125
  6. TIENAM [Suspect]
     Indication: DRUG USE FOR UNKNOWN INDICATION
     Route: 041
     Dates: start: 20090125, end: 20090210
  7. VANCOMYCINE [Suspect]
     Indication: DRUG USE FOR UNKNOWN INDICATION
     Route: 041
     Dates: start: 20090125, end: 20090210

REACTIONS (6)
  - AREFLEXIA [None]
  - ASTHENIA [None]
  - CONFUSIONAL STATE [None]
  - HYPERAMMONAEMIC ENCEPHALOPATHY [None]
  - HYPOKINESIA [None]
  - VOMITING [None]
